FAERS Safety Report 23223016 (Version 4)
Quarter: 2024Q1

REPORT INFORMATION
  Report Type: Report from Study
  Country: US (occurrence: US)
  Receive Date: 20231123
  Receipt Date: 20240201
  Transmission Date: 20240410
  Serious: Yes (Death, Hospitalization, Other)
  Sender: FDA-Public Use
  Company Number: US-TAKEDA-2023TUS113734

PATIENT
  Sex: Female
  Weight: 60 kg

DRUGS (3)
  1. MARIBAVIR [Suspect]
     Active Substance: MARIBAVIR
     Indication: Cytomegalovirus infection
     Dosage: 200 MILLIGRAM, BID
     Route: 065
     Dates: start: 20231123
  2. MARIBAVIR [Suspect]
     Active Substance: MARIBAVIR
     Dosage: 200 MILLIGRAM, BID
     Route: 065
     Dates: start: 20231122
  3. MARIBAVIR [Suspect]
     Active Substance: MARIBAVIR
     Dosage: UNK, BID
     Route: 048

REACTIONS (3)
  - Death [Fatal]
  - Acute kidney injury [Unknown]
  - Product distribution issue [Unknown]
